FAERS Safety Report 7204504-8 (Version None)
Quarter: 2010Q4

REPORT INFORMATION
  Report Type: 
  Country: None (occurrence: None)
  Receive Date: 20101220
  Receipt Date: 20101213
  Transmission Date: 20110411
  Serious: Yes (Hospitalization)
  Sender: FDA-Public Use
  Company Number: TRP_07452_2010

PATIENT
  Age: 50 Year
  Sex: Male

DRUGS (2)
  1. RIBAVIRIN [Suspect]
     Indication: HEPATITIS C
     Dosage: (DF)
  2. PEG-INTRON [Suspect]
     Indication: HEPATITIS C
     Dosage: (DF)

REACTIONS (2)
  - ACQUIRED HAEMOPHILIA [None]
  - HAEMATOMA [None]
